FAERS Safety Report 4641254-6 (Version None)
Quarter: 2005Q2

REPORT INFORMATION
  Report Type: 
  Country: None (occurrence: None)
  Receive Date: 20050421
  Receipt Date: 20040701
  Transmission Date: 20051028
  Serious: Yes (Other)
  Sender: FDA-Public Use
  Company Number: GB-JNJFOC-20050402435

PATIENT
  Sex: Female

DRUGS (1)
  1. SPORANOX [Suspect]

REACTIONS (2)
  - ADRENAL INSUFFICIENCY [None]
  - THERAPEUTIC RESPONSE UNEXPECTED [None]
